FAERS Safety Report 6566002-4 (Version None)
Quarter: 2010Q1

REPORT INFORMATION
  Report Type: 
  Country: None (occurrence: None)
  Receive Date: 20100129
  Receipt Date: 20100129
  Transmission Date: 20100710
  Serious: Yes (Hospitalization, Other)
  Sender: FDA-Public Use
  Company Number: None

PATIENT
  Age: 29 Year
  Sex: Female
  Weight: 72.1219 kg

DRUGS (1)
  1. ALLI [Suspect]
     Indication: WEIGHT CONTROL
     Dosage: 60 MG 3 PER DAY PO
     Route: 048
     Dates: start: 20081015, end: 20081115

REACTIONS (2)
  - PANCREATIC MASS [None]
  - PANCREATITIS CHRONIC [None]
